FAERS Safety Report 10978940 (Version 1)
Quarter: 2015Q2

REPORT INFORMATION
  Report Type: Spontaneous
  Country: US (occurrence: US)
  Receive Date: 20150402
  Receipt Date: 20150402
  Transmission Date: 20150821
  Serious: No
  Sender: FDA-Public Use
  Company Number: US-PFIZER INC-2015107870

PATIENT
  Age: 83 Year
  Sex: Female

DRUGS (11)
  1. BETADINE [Suspect]
     Active Substance: POVIDONE-IODINE
     Indication: PRURITUS
     Dosage: UNK
     Dates: start: 1979
  2. BETADINE [Suspect]
     Active Substance: POVIDONE-IODINE
     Indication: BLISTER
  3. CODEINE [Suspect]
     Active Substance: CODEINE
     Indication: VOMITING
  4. LEVAQUIN [Suspect]
     Active Substance: LEVOFLOXACIN
     Dosage: UNK
  5. MORPHINE SULFATE. [Suspect]
     Active Substance: MORPHINE SULFATE
     Dosage: UNK
  6. ATORVASTATIN CALCIUM. [Suspect]
     Active Substance: ATORVASTATIN CALCIUM
     Indication: BLOOD CHOLESTEROL INCREASED
     Dosage: UNK
  7. CODEINE [Suspect]
     Active Substance: CODEINE
     Indication: RESTLESSNESS
  8. VITAMIN K [Suspect]
     Active Substance: PHYTONADIONE
     Dosage: UNK
  9. CODEINE [Suspect]
     Active Substance: CODEINE
     Indication: PAIN
     Dosage: UNK
  10. NEXIUM [Suspect]
     Active Substance: ESOMEPRAZOLE MAGNESIUM
     Dosage: UNK
  11. CODEINE [Suspect]
     Active Substance: CODEINE
     Indication: NAUSEA

REACTIONS (1)
  - Drug hypersensitivity [Unknown]
